FAERS Safety Report 24905037 (Version 1)
Quarter: 2025Q1

REPORT INFORMATION
  Report Type: Spontaneous
  Country: CN (occurrence: CN)
  Receive Date: 20250130
  Receipt Date: 20250130
  Transmission Date: 20250408
  Serious: Yes (Other)
  Sender: MERCK
  Company Number: CN-009507513-2501CHN010016

PATIENT
  Age: 67 Year
  Sex: Female

DRUGS (1)
  1. CILASTATIN SODIUM\IMIPENEM [Suspect]
     Active Substance: CILASTATIN SODIUM\IMIPENEM
     Indication: Anti-infective therapy
     Dosage: 0.5 G, Q6H
     Route: 041
     Dates: start: 20250116, end: 20250124

REACTIONS (2)
  - Epilepsy [Recovering/Resolving]
  - Oxygen saturation decreased [Unknown]

NARRATIVE: CASE EVENT DATE: 20250124
